FAERS Safety Report 8591982 (Version 3)
Quarter: 2012Q4

REPORT INFORMATION
  Report Type: 
  Country: US (occurrence: US)
  Receive Date: 20120601
  Receipt Date: 20120831
  Transmission Date: 20130627
  Serious: Yes (Other)
  Sender: FDA-Public Use
  Company Number: US-MPIJNJ-2012-03682

PATIENT
  Age: 61 Year
  Sex: Male
  Weight: 74.15 kg

DRUGS (8)
  1. VELCADE [Suspect]
     Indication: MANTLE CELL LYMPHOMA
     Dosage: 2 mg, UNK
     Route: 042
     Dates: start: 20110128, end: 20110527
  2. LENALIDOMIDE [Suspect]
     Indication: MANTLE CELL LYMPHOMA
     Dosage: 10 mg, UNK
     Route: 048
     Dates: start: 20110128, end: 20110531
  3. RITUXIMAB [Suspect]
     Indication: MANTLE CELL LYMPHOMA
     Dosage: 780 mg, UNK
     Route: 042
     Dates: start: 20110128, end: 20110524
  4. RITUXIMAB [Suspect]
     Dosage: UNK
     Dates: start: 20110830, end: 20120124
  5. PERCOCET                           /00446701/ [Concomitant]
     Indication: PAIN
     Dosage: 7.5 mg, prn
     Dates: start: 20111227
  6. LYRICA [Concomitant]
     Indication: PAIN
     Dosage: 150 mg, bid
     Dates: start: 20120117
  7. DILAUDID [Concomitant]
     Indication: PAIN
     Dosage: 2 mg, prn
     Dates: start: 20110719
  8. LORTAB                             /00607101/ [Concomitant]
     Indication: PAIN
     Dosage: UNK
     Dates: start: 20120222

REACTIONS (2)
  - Second primary malignancy [Recovering/Resolving]
  - Anal squamous cell carcinoma [Recovering/Resolving]
